FAERS Safety Report 5059054-4 (Version None)
Quarter: 2006Q3

REPORT INFORMATION
  Report Type: 
  Country: None (occurrence: None)
  Receive Date: 20060719
  Receipt Date: 20060707
  Transmission Date: 20061208
  Serious: Yes (Death, Hospitalization)
  Sender: FDA-Public Use
  Company Number: R301638-PAP-USA

PATIENT
  Age: 67 Year
  Sex: Female
  Weight: 71 kg

DRUGS (5)
  1. ACIPHEX [Suspect]
     Indication: GASTROOESOPHAGEAL REFLUX DISEASE
     Dosage: 20 MG ORAL
     Route: 048
     Dates: start: 20030101
  2. GLUCOPHAGE [Concomitant]
  3. CONEQ [Concomitant]
  4. ZYRTEC [Concomitant]
  5. SPIRIVA [Concomitant]

REACTIONS (1)
  - ACUTE RESPIRATORY FAILURE [None]
